FAERS Safety Report 9069544 (Version 1)
Quarter: 2013Q1

REPORT INFORMATION
  Report Type: Spontaneous
  Country: US (occurrence: US)
  Receive Date: 20130131
  Receipt Date: 20130131
  Transmission Date: 20140127
  Serious: No
  Sender: FDA-Public Use
  Company Number: US-ASTRAZENECA-2013SE05041

PATIENT
  Age: 42 Year
  Sex: Male

DRUGS (5)
  1. LISINOPRIL [Suspect]
     Indication: BLOOD PRESSURE
     Route: 048
  2. SEROQUEL XR [Suspect]
     Indication: BIPOLAR DISORDER
     Route: 048
     Dates: start: 2012
  3. TRAZADONE [Concomitant]
     Indication: SLEEP DISORDER
  4. CLONAZEPAM [Concomitant]
     Indication: ANXIETY
  5. LAMOTRIGINE [Concomitant]

REACTIONS (2)
  - Panic attack [Unknown]
  - Drug dose omission [Unknown]
